FAERS Safety Report 13055537 (Version 1)
Quarter: 2016Q4

REPORT INFORMATION
  Report Type: Report from Study
  Country: US (occurrence: US)
  Receive Date: 20161222
  Receipt Date: 20161222
  Transmission Date: 20170207
  Serious: Yes (Other)
  Sender: FDA-Public Use
  Company Number: US-NAPPMUNDI-USA-2016-0135417

PATIENT
  Sex: Female

DRUGS (2)
  1. OXYCODONE HYDROCHLORIDE. [Suspect]
     Active Substance: OXYCODONE HYDROCHLORIDE
     Indication: INTERVERTEBRAL DISC DEGENERATION
     Dosage: UNK
     Route: 048
     Dates: start: 2008
  2. OXYCODONE HYDROCHLORIDE. [Suspect]
     Active Substance: OXYCODONE HYDROCHLORIDE
     Indication: PAIN
     Dosage: 80 MG, Q8H
     Route: 048

REACTIONS (2)
  - Cholecystitis infective [Unknown]
  - Off label use [Unknown]

NARRATIVE: CASE EVENT DATE: 2016
